FAERS Safety Report 7162011-5 (Version None)
Quarter: 2010Q4

REPORT INFORMATION
  Report Type: 
  Country: None (occurrence: None)
  Receive Date: 20101215
  Receipt Date: 20100823
  Transmission Date: 20110411
  Serious: Yes (Other)
  Sender: FDA-Public Use
  Company Number: US-PFIZER INC-2010083648

PATIENT
  Sex: Female
  Weight: 44.905 kg

DRUGS (1)
  1. LYRICA [Suspect]
     Indication: NEUROPATHY PERIPHERAL
     Dosage: 50 MG, 2X/DAY
     Route: 048
     Dates: start: 20100617, end: 20100705

REACTIONS (14)
  - BACK PAIN [None]
  - CHROMATURIA [None]
  - EYE SWELLING [None]
  - FACIAL PAIN [None]
  - FEAR [None]
  - HEADACHE [None]
  - LIP SWELLING [None]
  - LOCAL SWELLING [None]
  - MALAISE [None]
  - MUSCULOSKELETAL PAIN [None]
  - NAUSEA [None]
  - NECK PAIN [None]
  - NERVOUSNESS [None]
  - SWELLING FACE [None]
